FAERS Safety Report 13172258 (Version 5)
Quarter: 2017Q2

REPORT INFORMATION
  Report Type: Report from Study
  Country: BE (occurrence: BE)
  Receive Date: 20170201
  Receipt Date: 20170418
  Transmission Date: 20170830
  Serious: Yes (Hospitalization)
  Sender: FDA-Public Use
  Company Number: BE-EISAI MEDICAL RESEARCH-EC-2017-024506

PATIENT
  Age: 39 Year
  Sex: Female
  Weight: 40 kg

DRUGS (8)
  1. FYCOMPA [Suspect]
     Active Substance: PERAMPANEL
     Indication: EPILEPSY
     Route: 048
     Dates: start: 20160919, end: 20161016
  2. DEPAKINE [Concomitant]
     Active Substance: VALPROATE SODIUM
  3. FRISIUM [Concomitant]
     Active Substance: CLOBAZAM
  4. XANAX [Concomitant]
     Active Substance: ALPRAZOLAM
  5. FYCOMPA [Suspect]
     Active Substance: PERAMPANEL
     Route: 048
     Dates: start: 20161017, end: 20161020
  6. KEPPRA [Concomitant]
     Active Substance: LEVETIRACETAM
  7. VALPROATE CHRONO [Concomitant]
     Active Substance: VALPROATE SODIUM
  8. LAMICTAL [Concomitant]
     Active Substance: LAMOTRIGINE

REACTIONS (3)
  - Seizure [Recovered/Resolved]
  - Irritability [Recovered/Resolved]
  - Anxiety [Recovered/Resolved]

NARRATIVE: CASE EVENT DATE: 20161001
